FAERS Safety Report 4911167-0 (Version None)
Quarter: 2006Q1

REPORT INFORMATION
  Report Type: 
  Country: None (occurrence: None)
  Receive Date: 20060214
  Receipt Date: 20060201
  Transmission Date: 20060701
  Serious: Yes (Hospitalization, Congenital Anomaly)
  Sender: FDA-Public Use
  Company Number: PHBS2006US02115

PATIENT
  Sex: Male
  Weight: 2.78 kg

DRUGS (3)
  1. HYDROXYUREA [Concomitant]
     Route: 064
  2. ANAGRELIDE [Concomitant]
     Route: 064
  3. IMATINIB [Suspect]
     Route: 064

REACTIONS (3)
  - DRUG EXPOSURE DURING PREGNANCY [None]
  - HYPOSPADIAS [None]
  - URETHRAL REPAIR [None]
